FAERS Safety Report 25806269 (Version 1)
Quarter: 2025Q3

REPORT INFORMATION
  Report Type: Spontaneous
  Country: MK (occurrence: MK)
  Receive Date: 20250916
  Receipt Date: 20250916
  Transmission Date: 20251020
  Serious: Yes (Death, Hospitalization, Other)
  Sender: ASTELLAS
  Company Number: MK-ASTELLAS-2025-AER-050715

PATIENT
  Age: 41 Year
  Sex: Male

DRUGS (4)
  1. TACROLIMUS [Suspect]
     Active Substance: TACROLIMUS
     Indication: Renal transplant
     Route: 065
     Dates: start: 2019, end: 202409
  2. TACROLIMUS [Suspect]
     Active Substance: TACROLIMUS
     Dosage: FROM THE BEGINNING OF HOSPITALIZATION
     Route: 065
     Dates: start: 202409
  3. MYCOPHENOLIC ACID [Suspect]
     Active Substance: MYCOPHENOLIC ACID
     Indication: Renal transplant
     Route: 065
     Dates: start: 2019, end: 202409
  4. PREDNISOLONE [Concomitant]
     Active Substance: PREDNISOLONE
     Indication: Renal transplant
     Dosage: FROM THE BEGINNING OF HOSPITALIZATION
     Route: 065
     Dates: start: 2019

REACTIONS (3)
  - Plasma cell myeloma [Fatal]
  - Cardiac failure acute [Fatal]
  - Pulmonary oedema [Fatal]

NARRATIVE: CASE EVENT DATE: 20210101
